FAERS Safety Report 14739951 (Version 1)
Quarter: 2018Q2

REPORT INFORMATION
  Report Type: Spontaneous
  Country: FR (occurrence: FR)
  Receive Date: 20180410
  Receipt Date: 20180410
  Transmission Date: 20180711
  Serious: Yes (Other)
  Sender: FDA-Public Use
  Company Number: FR-MERCK KGAA-2045440

PATIENT
  Age: 63 Year
  Sex: Female
  Weight: 61 kg

DRUGS (4)
  1. NOVOTHYROX [Suspect]
     Active Substance: LEVOTHYROXINE SODIUM
     Indication: AUTOIMMUNE THYROIDITIS
     Dates: start: 201705, end: 201709
  2. NOVOTHYROX [Suspect]
     Active Substance: LEVOTHYROXINE SODIUM
     Dates: start: 201710, end: 201711
  3. NOVOTHYROX [Suspect]
     Active Substance: LEVOTHYROXINE SODIUM
     Dates: start: 201710, end: 201711
  4. IRBESARTAN. [Concomitant]
     Active Substance: IRBESARTAN

REACTIONS (20)
  - Cardiac disorder [None]
  - Blood cholesterol increased [None]
  - Fatigue [None]
  - Feeling cold [None]
  - Abdominal discomfort [None]
  - Alopecia [None]
  - Asthenia [None]
  - Glaucoma [None]
  - Malaise [None]
  - Depressed mood [None]
  - Abdominal pain [None]
  - Impaired driving ability [None]
  - Myalgia [None]
  - Multiple allergies [None]
  - Gamma-glutamyltransferase increased [None]
  - Blood glucose increased [None]
  - Gastritis [None]
  - Somnolence [None]
  - Weight increased [None]
  - Affect lability [None]

NARRATIVE: CASE EVENT DATE: 201707
